FAERS Safety Report 7491114-0 (Version None)
Quarter: 2011Q2

REPORT INFORMATION
  Report Type: 
  Country: None (occurrence: None)
  Receive Date: 20110519
  Receipt Date: 20110517
  Transmission Date: 20111010
  Serious: Yes (Hospitalization)
  Sender: FDA-Public Use
  Company Number: AR-ROCHE-776700

PATIENT
  Sex: Female

DRUGS (8)
  1. CEPHALEXIN [Concomitant]
  2. ENALAPRIL MALEATE [Concomitant]
     Dates: start: 20070101
  3. BLINDED BMS-650032 [Suspect]
     Indication: HEPATITIS C
     Dosage: FREQUENCY: DAILY
     Route: 048
     Dates: start: 20110224, end: 20110427
  4. ALPRAZOLAM [Concomitant]
     Dates: start: 20110406, end: 20110426
  5. PEGINTERFERON ALFA-2A [Suspect]
     Indication: HEPATITIS C
     Route: 058
     Dates: start: 20110224, end: 20110421
  6. RIBAVIRIN [Suspect]
     Indication: HEPATITIS C
     Dosage: DOSE: 1000MG 1 DAY
     Route: 048
     Dates: start: 20110224, end: 20110427
  7. PAROXETINE HCL [Concomitant]
     Dates: start: 20110406, end: 20110426
  8. OMEPRAZOLE [Concomitant]
     Dates: start: 20100101

REACTIONS (4)
  - ASPARTATE AMINOTRANSFERASE INCREASED [None]
  - HYPERBILIRUBINAEMIA [None]
  - ALANINE AMINOTRANSFERASE INCREASED [None]
  - CYSTITIS [None]
